FAERS Safety Report 4798064-9 (Version None)
Quarter: 2005Q4

REPORT INFORMATION
  Report Type: 
  Country: None (occurrence: None)
  Receive Date: 20051006
  Receipt Date: 20051006
  Transmission Date: 20060501
  Serious: Yes (Other)
  Sender: FDA-Public Use
  Company Number: None

PATIENT
  Age: 3 Year
  Sex: Female

DRUGS (2)
  1. CARBINOXAMINE PSE (GENERIC FOR PALGIC DS) [Suspect]
  2. CARBATROL [Suspect]

REACTIONS (1)
  - MEDICATION ERROR [None]
